FAERS Safety Report 8815120 (Version 2)
Quarter: 2012Q4

REPORT INFORMATION
  Report Type: Report from Study
  Country: JP (occurrence: JP)
  Receive Date: 20120928
  Receipt Date: 20121012
  Transmission Date: 20130627
  Serious: Yes (Hospitalization, Other)
  Sender: FDA-Public Use
  Company Number: JP-VERTEX PHARMACEUTICAL INC.-2012-021949

PATIENT
  Age: 63 Year
  Sex: Female

DRUGS (9)
  1. VX-950 [Suspect]
     Indication: HEPATITIS C
     Dosage: 2250 mg, qd
     Route: 048
     Dates: start: 20120605
  2. VX-950 [Suspect]
     Dosage: 1500 mg, qd
     Route: 048
  3. VX-950 [Suspect]
     Dosage: 2250 mg, qd
     Route: 048
     Dates: end: 20120722
  4. RIBAVIRIN [Suspect]
     Indication: HEPATITIS C
     Dosage: 200 mg, qd
     Route: 048
     Dates: start: 20120605, end: 20120722
  5. PEGINTERFERON ALFA-2B [Suspect]
     Indication: HEPATITIS C
     Dosage: 1.5 UNK, UNK
     Route: 058
     Dates: start: 20120605, end: 20120717
  6. ROCEPHIN [Concomitant]
     Dosage: 2 g, qd
     Route: 042
     Dates: start: 20120722, end: 20120802
  7. RECOMODULIN [Concomitant]
     Dosage: 25600 DF, qd
     Route: 042
     Dates: start: 20120722, end: 20120727
  8. METLIGINE [Concomitant]
     Dosage: 4 mg, qd
     Route: 048
  9. NEUART [Concomitant]
     Dosage: 1500 DF, qd
     Route: 048
     Dates: start: 20120724, end: 20120727

REACTIONS (3)
  - Disseminated intravascular coagulation [Recovered/Resolved]
  - Sepsis [Recovered/Resolved]
  - Anaemia [Recovered/Resolved]
